FAERS Safety Report 12853148 (Version 1)
Quarter: 2016Q4

REPORT INFORMATION
  Report Type: Spontaneous
  Country: US (occurrence: US)
  Receive Date: 20161017
  Receipt Date: 20161017
  Transmission Date: 20170207
  Serious: No
  Sender: FDA-Public Use
  Company Number: US-JAZZ-2016-US-014222

PATIENT
  Sex: Female

DRUGS (22)
  1. NAMENDA [Concomitant]
     Active Substance: MEMANTINE HYDROCHLORIDE
  2. XYREM [Suspect]
     Active Substance: SODIUM OXYBATE
     Dosage: 4.5 G, BID
     Route: 048
     Dates: start: 201605
  3. CLONIDINE HCL [Concomitant]
     Active Substance: CLONIDINE HYDROCHLORIDE
  4. DEXILANT [Concomitant]
     Active Substance: DEXLANSOPRAZOLE
  5. TIZANIDINE. [Concomitant]
     Active Substance: TIZANIDINE
  6. XANAX [Concomitant]
     Active Substance: ALPRAZOLAM
  7. DIAZEPAM. [Concomitant]
     Active Substance: DIAZEPAM
  8. DULOXETINE. [Concomitant]
     Active Substance: DULOXETINE
  9. MAGNESIUM OXIDE. [Concomitant]
     Active Substance: MAGNESIUM OXIDE
  10. QUETIAPINE. [Concomitant]
     Active Substance: QUETIAPINE
  11. VITAMIN D3 [Concomitant]
     Active Substance: CHOLECALCIFEROL
  12. VITAMIN E [Concomitant]
     Active Substance: .ALPHA.-TOCOPHEROL
  13. DRONABINOL. [Concomitant]
     Active Substance: DRONABINOL
  14. LEVOTHYROXINE SODIUM. [Concomitant]
     Active Substance: LEVOTHYROXINE SODIUM
  15. MULTIVITAMINS [Concomitant]
     Active Substance: VITAMINS
  16. XYREM [Suspect]
     Active Substance: SODIUM OXYBATE
     Indication: NARCOLEPSY
     Dosage: 2.25 G, BID
     Route: 048
     Dates: start: 201604, end: 201605
  17. FLUNARIZINE [Concomitant]
     Active Substance: FLUNARIZINE
  18. GABAPENTIN. [Concomitant]
     Active Substance: GABAPENTIN
  19. NAPROXEN. [Concomitant]
     Active Substance: NAPROXEN
  20. XYREM [Suspect]
     Active Substance: SODIUM OXYBATE
     Dosage: DOSE ADJUSTMENTS
     Route: 048
     Dates: start: 201605, end: 201605
  21. INDOMETHACIN. [Concomitant]
     Active Substance: INDOMETHACIN
  22. NYSTATIN W/TRIAMCINOLONE [Concomitant]

REACTIONS (1)
  - Wrong technique in product usage process [Unknown]

NARRATIVE: CASE EVENT DATE: 2016
